FAERS Safety Report 7325469-4 (Version None)
Quarter: 2011Q1

REPORT INFORMATION
  Report Type: 
  Country: None (occurrence: None)
  Receive Date: 20110302
  Receipt Date: 20110218
  Transmission Date: 20110831
  Serious: Yes (Hospitalization, Other)
  Sender: FDA-Public Use
  Company Number: US-ELI_LILLY_AND_COMPANY-US201010005524

PATIENT
  Sex: Male
  Weight: 85.261 kg

DRUGS (2)
  1. FORTEO [Suspect]
     Indication: OSTEOPOROSIS
     Dosage: 20 UG, DAILY (1/D)
     Route: 058
  2. BISPHOSPHONATES [Concomitant]

REACTIONS (6)
  - SEPTIC SHOCK [None]
  - BONE PAIN [None]
  - ARTHRALGIA [None]
  - PAIN [None]
  - PAIN IN EXTREMITY [None]
  - RENAL FAILURE [None]
